FAERS Safety Report 11108738 (Version 3)
Quarter: 2015Q3

REPORT INFORMATION
  Report Type: Report from Study
  Country: GB (occurrence: GB)
  Receive Date: 20150511
  Receipt Date: 20150805
  Transmission Date: 20151125
  Serious: Yes (Hospitalization)
  Sender: FDA-Public Use
  Company Number: 2015SGN00666

PATIENT

DRUGS (4)
  1. BRENTUXIMAB VEDOTIN [Suspect]
     Active Substance: BRENTUXIMAB VEDOTIN
     Indication: HODGKIN^S DISEASE
     Dosage: 120 MG, UNK
     Route: 042
     Dates: start: 20150205
  2. DACARBAZINE. [Suspect]
     Active Substance: DACARBAZINE
     Indication: HODGKIN^S DISEASE
     Dosage: 860 MG, UNK
     Route: 042
     Dates: start: 20150205
  3. VINBLASTINE [Suspect]
     Active Substance: VINBLASTINE
     Indication: HODGKIN^S DISEASE
     Dosage: 13.5 MG, UNK
     Route: 042
     Dates: start: 20150205
  4. DOXORUBICIN [Suspect]
     Active Substance: DOXORUBICIN
     Indication: HODGKIN^S DISEASE
     Dosage: 57 MG, UNK
     Route: 042
     Dates: start: 20150205

REACTIONS (4)
  - Haemoglobin decreased [None]
  - Hypomagnesaemia [Recovered/Resolved]
  - Haematocrit decreased [None]
  - Blood potassium decreased [None]

NARRATIVE: CASE EVENT DATE: 20150422
